FAERS Safety Report 6418396-8 (Version None)
Quarter: 2009Q4

REPORT INFORMATION
  Report Type: 
  Country: None (occurrence: None)
  Receive Date: 20091026
  Receipt Date: 20091013
  Transmission Date: 20100525
  Serious: Yes (Disabling)
  Sender: FDA-Public Use
  Company Number: ADR37312009

PATIENT
  Age: 68 Year
  Sex: Male

DRUGS (2)
  1. SIMVASTATIN [Suspect]
     Indication: MIXED HYPERLIPIDAEMIA
     Dosage: 20 MG DAILY ORAL USE
     Route: 048
     Dates: start: 20060330, end: 20060417
  2. DICLOFENAC [Concomitant]

REACTIONS (2)
  - MUSCULOSKELETAL STIFFNESS [None]
  - MYOPATHY [None]
